FAERS Safety Report 6766836-7 (Version None)
Quarter: 2010Q2

REPORT INFORMATION
  Report Type: 
  Country: None (occurrence: None)
  Receive Date: 20100611
  Receipt Date: 20100602
  Transmission Date: 20101027
  Serious: Yes (Hospitalization)
  Sender: FDA-Public Use
  Company Number: FR-ABBOTT-10P-056-0648431-00

PATIENT
  Age: 32 Year
  Sex: Male

DRUGS (5)
  1. DEPAKENE [Suspect]
     Indication: EPILEPSY
     Dosage: DAILY
     Route: 048
     Dates: start: 20100210, end: 20100309
  2. DEPAKENE [Suspect]
     Indication: MENTAL DISORDER
  3. URBANYL [Concomitant]
     Indication: DRUG USE FOR UNKNOWN INDICATION
  4. CLOZAPINE [Concomitant]
     Indication: DRUG USE FOR UNKNOWN INDICATION
  5. HALDOL [Concomitant]
     Indication: DRUG USE FOR UNKNOWN INDICATION

REACTIONS (7)
  - ASTHENIA [None]
  - CONFUSIONAL STATE [None]
  - HYPERAMMONAEMIA [None]
  - LEUKOCYTOSIS [None]
  - PNEUMONIA ASPIRATION [None]
  - PYREXIA [None]
  - SOMNOLENCE [None]
